FAERS Safety Report 6349655-5 (Version None)
Quarter: 2009Q3

REPORT INFORMATION
  Report Type: 
  Country: None (occurrence: None)
  Receive Date: 20090911
  Receipt Date: 20090901
  Transmission Date: 20100115
  Serious: Yes (Hospitalization, Other)
  Sender: FDA-Public Use
  Company Number: DE-PFIZER INC-2009262890

PATIENT
  Age: 32 Year

DRUGS (2)
  1. ZOLOFT [Suspect]
     Indication: PSYCHOTIC DISORDER
     Dosage: 50 MG, 1X/DAY
     Dates: start: 20090601
  2. ZOLOFT [Suspect]
     Dosage: 100 MG, 1X/DAY
     Route: 048
     Dates: end: 20090601

REACTIONS (3)
  - CAESAREAN SECTION [None]
  - DELAYED DELIVERY [None]
  - OEDEMA [None]
